FAERS Safety Report 8286556-X (Version None)
Quarter: 2012Q2

REPORT INFORMATION
  Report Type: 
  Country: None (occurrence: None)
  Receive Date: 20120416
  Receipt Date: 20120327
  Transmission Date: 20120825
  Serious: Yes (Hospitalization)
  Sender: FDA-Public Use
  Company Number: GB-BAYER-2012-028508

PATIENT

DRUGS (1)
  1. GADAVIST [Suspect]
     Dosage: 7.5 ML, ONCE
     Dates: start: 20120321, end: 20120321

REACTIONS (2)
  - VOMITING [None]
  - OEDEMA [None]
